FAERS Safety Report 12202110 (Version 7)
Quarter: 2016Q3

REPORT INFORMATION
  Report Type: Report from Study
  Country: US (occurrence: US)
  Receive Date: 20160322
  Receipt Date: 20160906
  Transmission Date: 20161109
  Serious: Yes (Hospitalization, Other)
  Sender: FDA-Public Use
  Company Number: US-AMGEN-USASL2016035166

PATIENT
  Age: 74 Year
  Sex: Female

DRUGS (3)
  1. ENBREL [Suspect]
     Active Substance: ETANERCEPT
     Indication: RHEUMATOID ARTHRITIS
     Dosage: 50 MG, WEEKLY
     Route: 065
     Dates: start: 20151224
  2. METHOTREXATE. [Concomitant]
     Active Substance: METHOTREXATE
     Dosage: 2.5 MG, FOUR TIMES A WEEK
  3. ENBREL [Suspect]
     Active Substance: ETANERCEPT
     Dosage: UNK
     Route: 065

REACTIONS (15)
  - Injection site extravasation [Unknown]
  - Drug effect decreased [Unknown]
  - Paraesthesia [Unknown]
  - Joint swelling [Unknown]
  - Viral infection [Unknown]
  - Infection [Unknown]
  - Muscle strain [Unknown]
  - Spinal operation [Unknown]
  - Peripheral swelling [Not Recovered/Not Resolved]
  - Musculoskeletal pain [Not Recovered/Not Resolved]
  - Pollakiuria [Unknown]
  - Musculoskeletal disorder [Unknown]
  - Thrombosis [Unknown]
  - Incision site infection [Unknown]
  - Mass [Unknown]

NARRATIVE: CASE EVENT DATE: 2016
